FAERS Safety Report 20674057 (Version 1)
Quarter: 2022Q2

REPORT INFORMATION
  Report Type: Spontaneous
  Country: GB (occurrence: GB)
  Receive Date: 20220405
  Receipt Date: 20220405
  Transmission Date: 20220721
  Serious: Yes (Other)
  Sender: FDA-Public Use
  Company Number: GB-drreddys-LIT/UKI/21/0145233

PATIENT
  Age: 61 Year
  Sex: Female

DRUGS (7)
  1. PREGABALIN [Interacting]
     Active Substance: PREGABALIN
     Indication: Product used for unknown indication
  2. AMISULPRIDE [Interacting]
     Active Substance: AMISULPRIDE
     Indication: Product used for unknown indication
  3. LITHIUM [Interacting]
     Active Substance: LITHIUM
     Indication: Product used for unknown indication
  4. PROCYCLIDINE [Interacting]
     Active Substance: PROCYCLIDINE
     Indication: Product used for unknown indication
  5. PROPRANOLOL [Interacting]
     Active Substance: PROPRANOLOL HYDROCHLORIDE
     Indication: Product used for unknown indication
  6. TIOTROPIUM [Interacting]
     Active Substance: TIOTROPIUM
     Indication: Product used for unknown indication
  7. ZOPICLONE [Interacting]
     Active Substance: ZOPICLONE
     Indication: Product used for unknown indication

REACTIONS (5)
  - Drug interaction [Unknown]
  - Behaviour disorder [Recovering/Resolving]
  - Cognitive disorder [Recovering/Resolving]
  - Product prescribing issue [Unknown]
  - Treatment noncompliance [Unknown]
